FAERS Safety Report 18868383 (Version 1)
Quarter: 2021Q1

REPORT INFORMATION
  Report Type: Spontaneous
  Country: US (occurrence: US)
  Receive Date: 20210209
  Receipt Date: 20210209
  Transmission Date: 20210420
  Serious: Yes (Hospitalization, Other)
  Sender: FDA-Public Use
  Company Number: US-ABBVIE-21K-163-3758462-00

PATIENT
  Age: 69 Year
  Sex: Male

DRUGS (3)
  1. LITHIUM. [Suspect]
     Active Substance: LITHIUM
     Indication: AFFECTIVE DISORDER
     Route: 065
  2. VALPROATE SODIUM. [Suspect]
     Active Substance: VALPROATE SODIUM
     Indication: PRODUCT USED FOR UNKNOWN INDICATION
     Route: 065
  3. AMANTADINE. [Concomitant]
     Active Substance: AMANTADINE HYDROCHLORIDE
     Indication: PRODUCT USED FOR UNKNOWN INDICATION

REACTIONS (13)
  - Paranoia [Unknown]
  - Hallucination, visual [Unknown]
  - Condition aggravated [Unknown]
  - Mental disorder [Unknown]
  - Confusional state [Unknown]
  - Drug level below therapeutic [Unknown]
  - Hypersexuality [Unknown]
  - Delirium [Unknown]
  - Accidental overdose [Unknown]
  - Agitation [Unknown]
  - Toxicity to various agents [Unknown]
  - Pressure of speech [Unknown]
  - Grandiosity [Unknown]
